FAERS Safety Report 7313911-4 (Version None)
Quarter: 2011Q1

REPORT INFORMATION
  Report Type: 
  Country: None (occurrence: None)
  Receive Date: 20110217
  Receipt Date: 20110217
  Transmission Date: 20110831
  Serious: Yes (Hospitalization)
  Sender: FDA-Public Use
  Company Number: None

PATIENT
  Sex: Female
  Weight: 108.8633 kg

DRUGS (2)
  1. THIOLA (TIOPRONIN) [Suspect]
     Indication: SUBARACHNOID HAEMORRHAGE
     Dosage: 1000 MG/DAY ORALLY
     Route: 048
     Dates: start: 20101120
  2. THIOLA (TIOPRONIN) [Suspect]
     Indication: SUBARACHNOID HAEMORRHAGE
     Dosage: 1000 MG/DAY ORALLY
     Route: 048
     Dates: start: 20101129

REACTIONS (2)
  - RESPIRATORY FAILURE [None]
  - PNEUMONIA STAPHYLOCOCCAL [None]
